FAERS Safety Report 8789760 (Version 1)
Quarter: 2012Q4

REPORT INFORMATION
  Report Type: Spontaneous
  Country: US (occurrence: None)
  Receive Date: 20120911
  Receipt Date: 20120911
  Transmission Date: 20130627
  Serious: Yes (Other)
  Sender: FDA-Public Use
  Company Number: None

PATIENT
  Age: 71 Year
  Sex: Female
  Weight: 77.16 kg

DRUGS (1)
  1. ACTEMRA [Suspect]
     Indication: RA
     Route: 042
     Dates: start: 20120904

REACTIONS (3)
  - Sensation of heaviness [None]
  - Muscular weakness [None]
  - Gait disturbance [None]
